FAERS Safety Report 10130815 (Version 2)
Quarter: 2014Q2

REPORT INFORMATION
  Report Type: Spontaneous
  Country: US (occurrence: US)
  Receive Date: 20140428
  Receipt Date: 20140508
  Transmission Date: 20141212
  Serious: Yes (Other)
  Sender: FDA-Public Use
  Company Number: US-009507513-1404USA013155

PATIENT
  Sex: Male

DRUGS (1)
  1. JANUVIA [Suspect]
     Dosage: 200 MG, QD
     Route: 048

REACTIONS (3)
  - Cardiac pacemaker removal [Recovered/Resolved]
  - Fatigue [Unknown]
  - Overdose [Unknown]
